FAERS Safety Report 17755168 (Version 1)
Quarter: 2020Q2

REPORT INFORMATION
  Report Type: Spontaneous
  Country: SE (occurrence: SE)
  Receive Date: 20200507
  Receipt Date: 20200507
  Transmission Date: 20200714
  Serious: Yes (Hospitalization, Other)
  Sender: FDA-Public Use
  Company Number: SE-TEVA-2020-SE-1230862

PATIENT
  Age: 78 Year
  Sex: Female

DRUGS (1)
  1. ATORVASTATIN [Suspect]
     Active Substance: ATORVASTATIN
     Route: 065

REACTIONS (6)
  - Muscular weakness [Unknown]
  - Subacute hepatic failure [Unknown]
  - Acute hepatic failure [Unknown]
  - Rhabdomyolysis [Unknown]
  - Renal failure [Unknown]
  - Myalgia [Unknown]

NARRATIVE: CASE EVENT DATE: 201912
